FAERS Safety Report 18796896 (Version 1)
Quarter: 2021Q1

REPORT INFORMATION
  Report Type: Spontaneous
  Country: CA (occurrence: CA)
  Receive Date: 20210127
  Receipt Date: 20210127
  Transmission Date: 20210419
  Serious: Yes (Other)
  Sender: FDA-Public Use
  Company Number: CA-B.I. PHARMACEUTICALS,INC./RIDGEFIELD-2021-BI-078285

PATIENT
  Age: 5 Year
  Sex: Male
  Weight: 16 kg

DRUGS (2)
  1. L?ARGININE [ARGININE] [Suspect]
     Active Substance: ARGININE
     Indication: SOMATOTROPIN STIMULATION TEST
     Route: 042
  2. CATAPRES [Suspect]
     Active Substance: CLONIDINE HYDROCHLORIDE
     Indication: SOMATOTROPIN STIMULATION TEST
     Route: 048

REACTIONS (3)
  - Off label use [Recovered/Resolved]
  - Haematuria [Recovered/Resolved]
  - Myalgia [Recovered/Resolved]
